FAERS Safety Report 9519261 (Version 1)
Quarter: 2013Q1

REPORT INFORMATION
  Report Type: Spontaneous
  Country: US (occurrence: None)
  Receive Date: 20130305
  Receipt Date: 20130305
  Transmission Date: 20140127
  Serious: Yes (Other)
  Sender: FDA-Public Use
  Company Number: 163-21880-12110217

PATIENT
  Age: 55 Year
  Sex: Female

DRUGS (1)
  1. REVLIMID (LENALIDOMIDE) (CAPSULES) [Suspect]
     Indication: PLASMA CELL MYELOMA
     Dosage: EVERY MONDAY, WED., FRIDAY, PO
     Route: 048
     Dates: start: 20121007

REACTIONS (3)
  - Renal failure chronic [None]
  - Sinus disorder [None]
  - Cough [None]
